FAERS Safety Report 9833131 (Version 3)
Quarter: 2014Q2

REPORT INFORMATION
  Report Type: Report from Study
  Country: FR (occurrence: FR)
  Receive Date: 20140121
  Receipt Date: 20140504
  Transmission Date: 20141212
  Serious: Yes (Hospitalization)
  Sender: FDA-Public Use
  Company Number: FR-TEVA-454059ISR

PATIENT
  Age: 66 Year
  Sex: Female

DRUGS (5)
  1. MYOCET [Suspect]
     Dosage: 92 MILLIGRAM DAILY; CYCLE 01 DAY 01
     Dates: start: 20131115, end: 20131115
  2. CARBOPLATINE [Suspect]
     Dosage: 480 MILLIGRAM DAILY; CYCLE 01 DAY 01
     Dates: start: 20131115, end: 20131115
  3. PROFENID [Concomitant]
     Route: 048
  4. OMEPRAZOLE [Concomitant]
     Route: 048
  5. KARDEGIC [Concomitant]
     Route: 048

REACTIONS (7)
  - Back pain [Not Recovered/Not Resolved]
  - Pain in extremity [Not Recovered/Not Resolved]
  - Intestinal obstruction [Recovered/Resolved]
  - Renal failure [Unknown]
  - Hyponatraemia [Unknown]
  - Hypokalaemia [Unknown]
  - Ascites [Unknown]
